FAERS Safety Report 5878104-6 (Version None)
Quarter: 2008Q3

REPORT INFORMATION
  Report Type: 
  Country: None (occurrence: None)
  Receive Date: 20080911
  Receipt Date: 20080910
  Transmission Date: 20090109
  Serious: Yes (Hospitalization)
  Sender: FDA-Public Use
  Company Number: AU-BRISTOL-MYERS SQUIBB COMPANY-13704937

PATIENT
  Age: 65 Year
  Sex: Male

DRUGS (11)
  1. PACLITAXEL [Suspect]
     Indication: NON-SMALL CELL LUNG CANCER
     Dosage: 334MG. 200MG/M2 ON DAY 1 OF 21DAY CYCLE INITIAL DOSE ON 07DEC06
     Route: 042
     Dates: start: 20070118, end: 20070118
  2. CARBOPLATIN [Suspect]
     Indication: NON-SMALL CELL LUNG CANCER
     Dosage: AUC6; TDD 630MG ON DAY 1 OF 21 DAY CYCLE INITIAL DOSE ON 07DEC06
     Route: 042
     Dates: start: 20070118, end: 20070118
  3. PF-3512676 [Suspect]
     Indication: NON-SMALL CELL LUNG CANCER
     Dosage: 12.2MG. 0.2MG/KG ON DAY 8 + 15 OF 21 DAY CYCLE INITIAL DOSE ON 14DEC06
     Route: 058
     Dates: start: 20070125, end: 20070125
  4. PANAMAX [Concomitant]
     Route: 048
     Dates: start: 20061101
  5. PROCHLORPERAZINE [Concomitant]
     Route: 048
     Dates: start: 20061101
  6. MAXOLON [Concomitant]
     Route: 048
     Dates: start: 20061116
  7. BACTRIM [Concomitant]
     Route: 048
     Dates: start: 20061214, end: 20061220
  8. MYLANTA [Concomitant]
     Route: 048
     Dates: start: 20061214
  9. COLOXYL + SENNA [Concomitant]
     Route: 048
     Dates: start: 20061228
  10. SODIUM BICARBONATE [Concomitant]
     Route: 048
     Dates: start: 20070104
  11. CHLOROMYCETIN [Concomitant]
     Route: 061
     Dates: start: 20070111

REACTIONS (1)
  - DEHYDRATION [None]
